FAERS Safety Report 10329707 (Version 1)
Quarter: 2014Q3

REPORT INFORMATION
  Report Type: Spontaneous
  Country: JP (occurrence: JP)
  Receive Date: 20140721
  Receipt Date: 20140721
  Transmission Date: 20150326
  Serious: Yes (Death, Life-Threatening, Hospitalization, Other)
  Sender: FDA-Public Use
  Company Number: JP-WATSON-2014-15432

PATIENT
  Age: 72 Year
  Sex: Male

DRUGS (6)
  1. HYDROCORTISONE. [Concomitant]
     Active Substance: HYDROCORTISONE
     Indication: ADRENAL INSUFFICIENCY
     Dosage: 3.3 MG, DAILY
     Route: 065
  2. CEFEPIME [Suspect]
     Active Substance: CEFEPIME\CEFEPIME HYDROCHLORIDE
     Indication: PANCYTOPENIA
  3. CEFEPIME [Suspect]
     Active Substance: CEFEPIME\CEFEPIME HYDROCHLORIDE
     Indication: FEBRILE NEUTROPENIA
     Dosage: UNK
     Route: 065
  4. PACLITAXEL (UNKNOWN) [Suspect]
     Active Substance: PACLITAXEL
     Dosage: 200 MG/M2, ON DAY 1
     Route: 065
  5. CARBOPLATIN (UNKNOWN) [Suspect]
     Active Substance: CARBOPLATIN
     Indication: LUNG SQUAMOUS CELL CARCINOMA STAGE III
     Dosage: UNK
     Route: 065
  6. PACLITAXEL (UNKNOWN) [Suspect]
     Active Substance: PACLITAXEL
     Indication: LUNG SQUAMOUS CELL CARCINOMA STAGE III
     Dosage: 140 MG/M2, UNKNOWN
     Route: 065

REACTIONS (7)
  - Candida sepsis [Fatal]
  - Necrotising colitis [Not Recovered/Not Resolved]
  - Ileus [Fatal]
  - Candida infection [Fatal]
  - Hypotension [Not Recovered/Not Resolved]
  - Pancytopenia [Recovering/Resolving]
  - Febrile neutropenia [Fatal]
